FAERS Safety Report 6812685-0 (Version None)
Quarter: 2010Q2

REPORT INFORMATION
  Report Type: 
  Country: None (occurrence: None)
  Receive Date: 20100628
  Receipt Date: 20100615
  Transmission Date: 20101027
  Serious: Yes (Hospitalization)
  Sender: FDA-Public Use
  Company Number: 7008088

PATIENT
  Age: 60 Year
  Sex: Female
  Weight: 48 kg

DRUGS (5)
  1. REBIF [Suspect]
     Indication: MULTIPLE SCLEROSIS
     Dosage: 44 MCG, 3 IN 1 WK, SUBCUTANEOUS
     Route: 058
     Dates: start: 20091207, end: 20100601
  2. REBIF [Suspect]
     Indication: MULTIPLE SCLEROSIS
     Dosage: 44 MCG, 3 IN 1 WK, SUBCUTANEOUS
     Route: 058
     Dates: start: 20100614
  3. OXYBUTYNIN CHLORIDE [Concomitant]
  4. ASPIRIN (COLSPRIN) [Concomitant]
  5. CYMBALTA [Concomitant]

REACTIONS (4)
  - ASTHENIA [None]
  - DEHYDRATION [None]
  - GASTROENTERITIS VIRAL [None]
  - LIVER FUNCTION TEST ABNORMAL [None]
